FAERS Safety Report 15956023 (Version 1)
Quarter: 2019Q1

REPORT INFORMATION
  Report Type: Spontaneous
  Country: US (occurrence: US)
  Receive Date: 20190212
  Receipt Date: 20190212
  Transmission Date: 20190417
  Serious: Yes (Life-Threatening, Disabling, Other)
  Sender: FDA-Public Use
  Company Number: None

PATIENT
  Age: 31 Year
  Sex: Female
  Weight: 50.4 kg

DRUGS (8)
  1. XANAX [Concomitant]
     Active Substance: ALPRAZOLAM
  2. BACLOFEN. [Concomitant]
     Active Substance: BACLOFEN
  3. ZYRTEC [Concomitant]
     Active Substance: CETIRIZINE HYDROCHLORIDE
  4. ADDERALL [Concomitant]
     Active Substance: AMPHETAMINE ASPARTATE\AMPHETAMINE SULFATE\DEXTROAMPHETAMINE SACCHARATE\DEXTROAMPHETAMINE SULFATE
  5. LUPRON [Suspect]
     Active Substance: LEUPROLIDE ACETATE
     Indication: ENDOMETRIOSIS
     Dosage: ?          OTHER FREQUENCY:ONCE A MONTH;?
     Route: 030
     Dates: start: 20181120, end: 20181120
  6. TOPAMAX [Concomitant]
     Active Substance: TOPIRAMATE
  7. EFFEXOR [Concomitant]
     Active Substance: VENLAFAXINE HYDROCHLORIDE
  8. AMBIEN [Concomitant]
     Active Substance: ZOLPIDEM TARTRATE

REACTIONS (13)
  - Bone pain [None]
  - Visual impairment [None]
  - Dizziness [None]
  - Amnesia [None]
  - Anxiety [None]
  - Heart rate increased [None]
  - Depression [None]
  - Job dissatisfaction [None]
  - Mood swings [None]
  - Hot flush [None]
  - Suicidal ideation [None]
  - Lipids increased [None]
  - Asthenia [None]

NARRATIVE: CASE EVENT DATE: 20190119
